FAERS Safety Report 6250402-6 (Version None)
Quarter: 2009Q2

REPORT INFORMATION
  Report Type: 
  Country: None (occurrence: None)
  Receive Date: 20090630
  Receipt Date: 20090626
  Transmission Date: 20091009
  Serious: Yes (Life-Threatening, Hospitalization)
  Sender: FDA-Public Use
  Company Number: BE-BRISTOL-MYERS SQUIBB COMPANY-14674758

PATIENT
  Age: 38 Year
  Sex: Female

DRUGS (9)
  1. STAVUDINE [Suspect]
     Indication: HIV INFECTION
  2. ABACAVIR [Suspect]
     Indication: HIV INFECTION
  3. LOPINAVIR AND RITONAVIR [Suspect]
     Dosage: 1 DF= 400/100MG
  4. RITONAVIR [Suspect]
     Indication: HIV INFECTION
  5. INDINIVIR SULFATE [Suspect]
     Indication: HIV INFECTION
  6. NELFINAVIR [Suspect]
     Indication: HIV INFECTION
  7. SAQUINAVIR [Suspect]
     Indication: HIV INFECTION
  8. AMPRENAVIR [Suspect]
     Indication: HIV INFECTION
  9. CABERGOLINE [Concomitant]
     Indication: PROLACTINOMA
     Dates: start: 19971001

REACTIONS (2)
  - OESOPHAGEAL VARICES HAEMORRHAGE [None]
  - PORTAL VEIN THROMBOSIS [None]
